FAERS Safety Report 5410337-5 (Version None)
Quarter: 2007Q3

REPORT INFORMATION
  Report Type: 
  Country: None (occurrence: None)
  Receive Date: 20070808
  Receipt Date: 20070723
  Transmission Date: 20080115
  Serious: Yes (Life-Threatening, Hospitalization)
  Sender: FDA-Public Use
  Company Number: DSA_30301_2007

PATIENT
  Age: 24 Month
  Sex: Female

DRUGS (1)
  1. LORAZEPAM [Suspect]
     Dosage: 1 MG (ORAL)
     Route: 048
     Dates: start: 20070723, end: 20070723

REACTIONS (4)
  - ACCIDENTAL DRUG INTAKE BY CHILD [None]
  - ACCIDENTAL OVERDOSE [None]
  - FATIGUE [None]
  - MEDICATION ERROR [None]
